FAERS Safety Report 6932750-7 (Version None)
Quarter: 2010Q3

REPORT INFORMATION
  Report Type: 
  Country: None (occurrence: None)
  Receive Date: 20100813
  Receipt Date: 20100426
  Transmission Date: 20110219
  Serious: No
  Sender: FDA-Public Use
  Company Number: 1000012512

PATIENT
  Age: 43 Year
  Sex: Male

DRUGS (10)
  1. SAVELLA [Suspect]
     Indication: PAIN
     Dosage: 12.5 MG (12.5 MG,1 IN 1 D), ORAL; 25 MG (12.5 MG,2 IN 1 D), ORAL; 50 MG (25,2 IN 1 D), ORAL
     Route: 048
     Dates: start: 20090731, end: 20090731
  2. SAVELLA [Suspect]
     Indication: PAIN
     Dosage: 12.5 MG (12.5 MG,1 IN 1 D), ORAL; 25 MG (12.5 MG,2 IN 1 D), ORAL; 50 MG (25,2 IN 1 D), ORAL
     Route: 048
     Dates: start: 20090801, end: 20090802
  3. SAVELLA [Suspect]
     Indication: PAIN
     Dosage: 12.5 MG (12.5 MG,1 IN 1 D), ORAL; 25 MG (12.5 MG,2 IN 1 D), ORAL; 50 MG (25,2 IN 1 D), ORAL
     Route: 048
     Dates: start: 20090803, end: 20090806
  4. SAVELLA [Suspect]
     Dosage: 100 MG (50 MG,2 IN 1 D), ORAL
     Route: 048
     Dates: start: 20090807, end: 20090812
  5. TRAMADOL HCL [Concomitant]
  6. NAPROXEN [Concomitant]
  7. LEXAPRO [Concomitant]
  8. TRAZODONE HCL [Concomitant]
  9. ZOLPIDEM [Concomitant]
  10. CLONAZEPAM [Concomitant]

REACTIONS (2)
  - MUSCLE SPASMS [None]
  - SENSATION OF HEAVINESS [None]
